FAERS Safety Report 6920600-4 (Version None)
Quarter: 2010Q3

REPORT INFORMATION
  Report Type: 
  Country: None (occurrence: None)
  Receive Date: 20100812
  Receipt Date: 20100802
  Transmission Date: 20110219
  Serious: Yes (Hospitalization, Disabling, Other)
  Sender: FDA-Public Use
  Company Number: GB-BRISTOL-MYERS SQUIBB COMPANY-15092661

PATIENT
  Age: 70 Year
  Sex: Male

DRUGS (8)
  1. ACETYLSALICYLIC ACID SRT [Interacting]
     Indication: CHEST PAIN
     Dosage: FOLLOWED BY 75MG/DAY
     Route: 065
  2. CIPROFLOXACIN [Interacting]
     Indication: CHALAZION
     Route: 048
  3. WARFARIN SODIUM [Suspect]
     Indication: PULMONARY EMBOLISM
     Route: 065
  4. CLOPIDOGREL BISULFATE [Interacting]
     Indication: CHEST PAIN
     Dosage: FOLLOWED BY 75MG/DAY
     Route: 065
  5. ERYTHROMYCIN [Interacting]
     Indication: CELLULITIS
     Route: 048
  6. METRONIDAZOLE [Interacting]
     Indication: CHALAZION
     Dosage: 250MG 4 IN A DAY
     Route: 048
  7. MEROPENEM [Interacting]
     Indication: CHALAZION
     Dosage: ROUTE : PARENTRAL
     Route: 051
  8. TEICOPLANIN [Interacting]
     Indication: CHALAZION
     Route: 030

REACTIONS (6)
  - CELLULITIS [None]
  - DRUG INTERACTION [None]
  - EYE EXCISION [None]
  - HYPHAEMA [None]
  - INTERNATIONAL NORMALISED RATIO INCREASED [None]
  - INTRAOCULAR PRESSURE INCREASED [None]
